FAERS Safety Report 23340102 (Version 1)
Quarter: 2023Q4

REPORT INFORMATION
  Report Type: Spontaneous
  Country: US (occurrence: US)
  Receive Date: 20231227
  Receipt Date: 20231227
  Transmission Date: 20240110
  Serious: Yes (Hospitalization, Other)
  Sender: FDA-Public Use
  Company Number: US-MLMSERVICE-20231215-4732359-1

PATIENT
  Age: 59 Year
  Sex: Female

DRUGS (3)
  1. CLOZAPINE [Suspect]
     Active Substance: CLOZAPINE
     Indication: Bipolar disorder
     Dosage: DOSE GRADUALLY INCREASED TO 75 MG IN THE MORNING AND 125 MG IN THE EVENING
  2. CLOZAPINE [Suspect]
     Active Substance: CLOZAPINE
     Indication: Depression
     Dosage: DOSE GRADUALLY INCREASED TO 75 MG IN THE MORNING AND 125 MG IN THE EVENING
  3. CLOZAPINE [Suspect]
     Active Substance: CLOZAPINE
     Dosage: DAY 14 OF HOSPITALIZATION

REACTIONS (1)
  - Pneumonia [Unknown]
